FAERS Safety Report 11952475 (Version 2)
Quarter: 2016Q1

REPORT INFORMATION
  Report Type: Spontaneous
  Country: US (occurrence: US)
  Receive Date: 20160126
  Receipt Date: 20160128
  Transmission Date: 20160526
  Serious: Yes (Hospitalization, Other)
  Sender: FDA-Public Use
  Company Number: US-DSJP-DSU-2015-133410

PATIENT

DRUGS (7)
  1. ACETAMINOPHEN AND CODEINE [Concomitant]
     Active Substance: ACETAMINOPHEN\CODEINE PHOSPHATE
     Indication: PRODUCT USED FOR UNKNOWN INDICATION
     Dosage: UNK
     Dates: start: 2007
  2. METOPROLOL. [Concomitant]
     Active Substance: METOPROLOL
     Indication: PRODUCT USED FOR UNKNOWN INDICATION
     Dosage: UNK
     Dates: start: 2007
  3. DIAZEPAM. [Concomitant]
     Active Substance: DIAZEPAM
     Indication: PRODUCT USED FOR UNKNOWN INDICATION
     Dosage: UNK
     Dates: start: 2007, end: 2013
  4. BENICAR HCT [Suspect]
     Active Substance: HYDROCHLOROTHIAZIDE\OLMESARTAN MEDOXOMIL
     Indication: HYPERTENSION
     Dosage: UNK
     Dates: start: 2005, end: 2009
  5. LISINOPRIL. [Concomitant]
     Active Substance: LISINOPRIL
     Indication: PRODUCT USED FOR UNKNOWN INDICATION
     Dosage: UNK
     Dates: start: 2008, end: 2013
  6. BENICAR [Suspect]
     Active Substance: OLMESARTAN MEDOXOMIL
     Dosage: 40 MG, UNK
     Dates: start: 20050527, end: 2009
  7. BENICAR [Suspect]
     Active Substance: OLMESARTAN MEDOXOMIL
     Indication: HYPERTENSION
     Dosage: 20 MG, UNK
     Dates: start: 20050527, end: 2009

REACTIONS (20)
  - Cholelithiasis [Unknown]
  - Malabsorption [Not Recovered/Not Resolved]
  - Gastrointestinal disorder [Unknown]
  - Carcinoid tumour of the gastrointestinal tract [Unknown]
  - Ileus [Recovered/Resolved]
  - Anaemia [Unknown]
  - Intestinal perforation [Unknown]
  - Vitamin B12 deficiency [Unknown]
  - Urinary tract infection [Recovered/Resolved]
  - Chronic kidney disease [Unknown]
  - Acute kidney injury [Unknown]
  - Lymphadenopathy [Unknown]
  - Internal hernia [Unknown]
  - Depression [Unknown]
  - Oesophagitis [Unknown]
  - Hepatic lesion [Unknown]
  - Cholecystectomy [Unknown]
  - Deep vein thrombosis [Unknown]
  - Lipoma [Unknown]
  - Colon adenoma [Unknown]

NARRATIVE: CASE EVENT DATE: 2006
